FAERS Safety Report 7499619-3 (Version None)
Quarter: 2011Q2

REPORT INFORMATION
  Report Type: 
  Country: None (occurrence: None)
  Receive Date: 20110524
  Receipt Date: 20110513
  Transmission Date: 20111010
  Serious: Yes (Other)
  Sender: FDA-Public Use
  Company Number: US-JNJFOC-20110508660

PATIENT
  Age: 64 Year
  Sex: Male

DRUGS (18)
  1. DOXORUBICIN HYDROCHLORIDE [Suspect]
     Route: 042
  2. VINCRISTINE [Suspect]
     Route: 065
  3. RITUXIMAB [Suspect]
     Route: 065
  4. DOXORUBICIN HYDROCHLORIDE [Suspect]
     Indication: DIFFUSE LARGE B-CELL LYMPHOMA
     Route: 042
  5. DOXORUBICIN HYDROCHLORIDE [Suspect]
     Route: 042
  6. PREDNISONE [Suspect]
     Route: 065
  7. RITUXIMAB [Suspect]
     Indication: DIFFUSE LARGE B-CELL LYMPHOMA
     Route: 065
  8. CYCLOPHOSPHAMIDE [Suspect]
     Indication: DIFFUSE LARGE B-CELL LYMPHOMA
  9. VINCRISTINE [Suspect]
     Indication: DIFFUSE LARGE B-CELL LYMPHOMA
     Route: 065
  10. CYCLOPHOSPHAMIDE [Suspect]
  11. PREDNISONE [Suspect]
     Indication: DIFFUSE LARGE B-CELL LYMPHOMA
     Route: 065
  12. DOXORUBICIN HYDROCHLORIDE [Suspect]
     Route: 042
  13. CYCLOPHOSPHAMIDE [Suspect]
  14. VINCRISTINE [Suspect]
     Route: 065
  15. VINCRISTINE [Suspect]
     Route: 065
  16. CYCLOPHOSPHAMIDE [Suspect]
  17. PREDNISONE [Suspect]
     Route: 065
  18. PREDNISONE [Suspect]
     Route: 065

REACTIONS (2)
  - CHOLECYSTITIS ACUTE [None]
  - DISSEMINATED LARGE CELL LYMPHOMA [None]
